FAERS Safety Report 12846206 (Version 2)
Quarter: 2016Q4

REPORT INFORMATION
  Report Type: Spontaneous
  Country: HU (occurrence: HU)
  Receive Date: 20161014
  Receipt Date: 20161124
  Transmission Date: 20170207
  Serious: Yes (Death, Other)
  Sender: FDA-Public Use
  Company Number: HU-ROCHE-1841976

PATIENT
  Age: 65 Year
  Sex: Female

DRUGS (1)
  1. MABTHERA [Suspect]
     Active Substance: RITUXIMAB
     Indication: CHRONIC LYMPHOCYTIC LEUKAEMIA
     Route: 042

REACTIONS (3)
  - Progressive multifocal leukoencephalopathy [Unknown]
  - Confusional state [Not Recovered/Not Resolved]
  - Death [Fatal]
